FAERS Safety Report 19738118 (Version 2)
Quarter: 2022Q2

REPORT INFORMATION
  Report Type: Spontaneous
  Country: US (occurrence: US)
  Receive Date: 20210823
  Receipt Date: 20220616
  Transmission Date: 20220721
  Serious: No
  Sender: FDA-Public Use
  Company Number: US-SA-SAC20210818001056

PATIENT
  Age: 31 Year
  Sex: Male

DRUGS (3)
  1. CEREZYME [Suspect]
     Active Substance: IMIGLUCERASE
     Indication: Gaucher^s disease
     Dosage: 8000 IU, QOW
     Route: 041
     Dates: start: 20140304
  2. CEREZYME [Suspect]
     Active Substance: IMIGLUCERASE
     Dosage: 7000 U, QOW
     Route: 041
     Dates: start: 201404
  3. CEREZYME [Suspect]
     Active Substance: IMIGLUCERASE
     Dosage: 8000 U, QOW
     Route: 041
     Dates: start: 20170426

REACTIONS (1)
  - Product dose omission issue [Unknown]

NARRATIVE: CASE EVENT DATE: 20210101
